FAERS Safety Report 6585650-9 (Version None)
Quarter: 2010Q1

REPORT INFORMATION
  Report Type: 
  Country: None (occurrence: None)
  Receive Date: 20100217
  Receipt Date: 20100205
  Transmission Date: 20100710
  Serious: Yes (Other)
  Sender: FDA-Public Use
  Company Number: US-PFIZER INC-2010015151

PATIENT
  Sex: Female
  Weight: 51.701 kg

DRUGS (6)
  1. FESOTERODINE [Suspect]
     Dosage: 4 MG, 1X/DAY
     Route: 048
     Dates: start: 20091103, end: 20100122
  2. AMITRIPTYLINE [Concomitant]
     Indication: DEPRESSION
     Dosage: UNK
     Route: 048
  3. IBANDRONATE SODIUM [Concomitant]
     Indication: OSTEOPOROSIS
     Dosage: UNK
     Route: 048
  4. BUSPIRONE [Concomitant]
     Indication: ANXIETY
     Dosage: UNK
     Route: 048
  5. POTASSIUM ACETATE [Concomitant]
     Dosage: UNK
     Route: 048
  6. SIMVASTATIN [Concomitant]
     Indication: BLOOD CHOLESTEROL INCREASED
     Dosage: UNK
     Route: 048

REACTIONS (1)
  - PRURITUS [None]
